FAERS Safety Report 13964450 (Version 2)
Quarter: 2017Q3

REPORT INFORMATION
  Report Type: Spontaneous
  Country: JP (occurrence: JP)
  Receive Date: 20170913
  Receipt Date: 20170915
  Transmission Date: 20171128
  Serious: Yes (Other)
  Sender: FDA-Public Use
  Company Number: JP-PFIZER INC-2017393989

PATIENT

DRUGS (3)
  1. NORVASC [Suspect]
     Active Substance: AMLODIPINE BESYLATE
     Dosage: 10 MG, DAILY
  2. NORVASC [Suspect]
     Active Substance: AMLODIPINE BESYLATE
     Dosage: 12.5 MG, DAILY
  3. VALSARTAN. [Suspect]
     Active Substance: VALSARTAN
     Dosage: UNSPECIFIED DOSE

REACTIONS (2)
  - Product use issue [Unknown]
  - Renal impairment [Unknown]
